FAERS Safety Report 12716634 (Version 1)
Quarter: 2016Q3

REPORT INFORMATION
  Report Type: Other
  Country: None (occurrence: US)
  Receive Date: 20160906
  Receipt Date: 20160906
  Transmission Date: 20161109
  Serious: No
  Sender: FDA-Public Use
  Company Number: US-COL_17776_2014

PATIENT
  Age: 75 Year
  Sex: Male

DRUGS (1)
  1. COLGATE TOTAL ADVANCED CLEAN [Suspect]
     Active Substance: SODIUM FLUORIDE\TRICLOSAN
     Indication: PRODUCT USED FOR UNKNOWN INDICATION
     Dosage: SWALLOWED A TINY AMOUNT OF THIS TOOTHPASTE YESTERDAY/ONCE/
     Route: 048

REACTIONS (2)
  - No adverse event [Recovered/Resolved]
  - Accidental exposure to product [Recovered/Resolved]

NARRATIVE: CASE EVENT DATE: 20140824
